FAERS Safety Report 8885865 (Version 1)
Quarter: 2012Q4

REPORT INFORMATION
  Report Type: 
  Country: US (occurrence: US)
  Receive Date: 20121102
  Receipt Date: 20121102
  Transmission Date: 20130627
  Serious: No
  Sender: FDA-Public Use
  Company Number: US-TEVA-367202USA

PATIENT
  Age: 30 Year
  Sex: Male

DRUGS (2)
  1. NUVIGIL [Suspect]
     Indication: CIRCADIAN RHYTHM SLEEP DISORDER
     Dosage: 50 Milligram Daily;
     Route: 048
  2. NUVIGIL [Suspect]
     Dosage: 150 Milligram Daily;
     Route: 048

REACTIONS (3)
  - Anxiety [Recovered/Resolved]
  - Feeling jittery [Recovered/Resolved]
  - Palpitations [Recovered/Resolved]
